FAERS Safety Report 7930121-8 (Version None)
Quarter: 2011Q4

REPORT INFORMATION
  Report Type: 
  Country: None (occurrence: None)
  Receive Date: 20111117
  Receipt Date: 20111103
  Transmission Date: 20120403
  Serious: Yes (Death)
  Sender: FDA-Public Use
  Company Number: UTC-011996

PATIENT
  Age: 56 Year
  Sex: Female
  Weight: 86.36 kg

DRUGS (5)
  1. COUMADIN [Concomitant]
  2. REMODULIN [Suspect]
     Indication: PULMONARY HYPERTENSION
     Dosage: 80.64 UG/KG (0.056 UG/KG, 1 IN 1 MIN), SUBCUTANEOUS
     Route: 058
     Dates: start: 20110331
  3. REVATIO [Concomitant]
  4. DIURETICS (DIURETICS) [Concomitant]
  5. CELLCEPT [Concomitant]

REACTIONS (1)
  - DEATH [None]
